FAERS Safety Report 15552197 (Version 2)
Quarter: 2018Q4

REPORT INFORMATION
  Report Type: Spontaneous
  Country: US (occurrence: US)
  Receive Date: 20181025
  Receipt Date: 20181123
  Transmission Date: 20190205
  Serious: No
  Sender: FDA-Public Use
  Company Number: US-ASTRAZENECA-2018SF27478

PATIENT
  Age: 919 Month
  Sex: Female

DRUGS (1)
  1. SYMBICORT [Suspect]
     Active Substance: BUDESONIDE\FORMOTEROL FUMARATE DIHYDRATE
     Dosage: 160/ 4.5 MCG TWO INHALATIONS TWICE A DAY.
     Route: 055

REACTIONS (3)
  - Asthenia [Unknown]
  - Intentional device misuse [Unknown]
  - Device issue [Unknown]

NARRATIVE: CASE EVENT DATE: 201809
